FAERS Safety Report 21124340 (Version 1)
Quarter: 2022Q3

REPORT INFORMATION
  Report Type: Spontaneous
  Country: US (occurrence: US)
  Receive Date: 20220725
  Receipt Date: 20220725
  Transmission Date: 20221026
  Serious: No
  Sender: FDA-Public Use
  Company Number: US-AUROBINDO-AUR-APL-2021-042451

PATIENT
  Age: 61 Year
  Sex: Female
  Weight: 137.89 kg

DRUGS (1)
  1. ZALEPLON [Suspect]
     Active Substance: ZALEPLON
     Indication: Sleep disorder
     Dosage: 10 MILLIGRAM, ONCE A DAY
     Route: 048

REACTIONS (2)
  - Osteoarthritis [Unknown]
  - Extra dose administered [Unknown]
